FAERS Safety Report 15310953 (Version 4)
Quarter: 2019Q2

REPORT INFORMATION
  Report Type: Spontaneous
  Country: JP (occurrence: JP)
  Receive Date: 20180823
  Receipt Date: 20190507
  Transmission Date: 20190711
  Serious: Yes (Death, Life-Threatening, Hospitalization, Other)
  Sender: FDA-Public Use
  Company Number: JP-BAYER-2018-155458

PATIENT
  Age: 70 Year
  Sex: Male
  Weight: 61 kg

DRUGS (6)
  1. RANMARK [Concomitant]
     Active Substance: DENOSUMAB
     Indication: PROSTATE CANCER
     Dosage: DAILY DOSE 120 MG
  2. PREDNISOLONE. [Suspect]
     Active Substance: PREDNISOLONE
     Indication: PROSTATE CANCER
     Dosage: DAILY DOSE 5 MG
     Route: 048
  3. GONAX [Concomitant]
     Active Substance: DEGARELIX
     Indication: PROSTATE CANCER
     Dosage: DAILY DOSE 80 MG
  4. XOFIGO [Suspect]
     Active Substance: RADIUM RA-223 DICHLORIDE
     Indication: HORMONE-REFRACTORY PROSTATE CANCER
     Dosage: 55KBQ/KG, Q4WK
     Route: 042
     Dates: start: 20180618, end: 20180618
  5. XOFIGO [Suspect]
     Active Substance: RADIUM RA-223 DICHLORIDE
     Indication: METASTASES TO BONE
     Dosage: 55KBQ/KG, Q4WK
     Route: 042
     Dates: start: 20180717, end: 20180717
  6. CASODEX [Concomitant]
     Active Substance: BICALUTAMIDE
     Indication: PROSTATE CANCER
     Dosage: DAILY DOSE 80 MG
     Route: 048

REACTIONS (8)
  - White blood cell count decreased [Not Recovered/Not Resolved]
  - Melaena [None]
  - Pancytopenia [Not Recovered/Not Resolved]
  - Malaise [None]
  - Diarrhoea [Fatal]
  - Enterocolitis [None]
  - Anaemia [Not Recovered/Not Resolved]
  - Platelet count decreased [Not Recovered/Not Resolved]

NARRATIVE: CASE EVENT DATE: 20180803
